FAERS Safety Report 21989299 (Version 5)
Quarter: 2023Q1

REPORT INFORMATION
  Report Type: Report from Study
  Country: US (occurrence: US)
  Receive Date: 20230214
  Receipt Date: 20230324
  Transmission Date: 20230418
  Serious: Yes (Other)
  Sender: FDA-Public Use
  Company Number: US-KYOWAKIRIN-2023BKK000981

PATIENT

DRUGS (2)
  1. MOGAMULIZUMAB [Suspect]
     Active Substance: MOGAMULIZUMAB
     Indication: Product used for unknown indication
     Dosage: UNK(INFUSION)
     Route: 042
     Dates: start: 20230118
  2. MOGAMULIZUMAB [Suspect]
     Active Substance: MOGAMULIZUMAB
     Dosage: 20 MG/5 ML
     Route: 042

REACTIONS (7)
  - Diverticulitis [Recovered/Resolved]
  - White blood cell count increased [Unknown]
  - Infusion related reaction [Unknown]
  - Infusion related reaction [Unknown]
  - Rash [Recovering/Resolving]
  - Nasopharyngitis [Unknown]
  - Product dose omission issue [Unknown]

NARRATIVE: CASE EVENT DATE: 20230118
